FAERS Safety Report 6521171-7 (Version None)
Quarter: 2009Q4

REPORT INFORMATION
  Report Type: 
  Country: None (occurrence: None)
  Receive Date: 20091222
  Receipt Date: 20091208
  Transmission Date: 20100525
  Serious: Yes (Hospitalization)
  Sender: FDA-Public Use
  Company Number: 233915J09USA

PATIENT
  Age: 33 Year
  Sex: Female
  Weight: 58 kg

DRUGS (11)
  1. REBIF [Suspect]
     Indication: MULTIPLE SCLEROSIS
     Dosage: 22 MCG; 44 MCG, 3 IN 1 WEEKS, SUBCUTANEOUS
     Route: 058
     Dates: start: 20091009, end: 20090101
  2. REBIF [Suspect]
     Indication: MULTIPLE SCLEROSIS
     Dosage: 22 MCG; 44 MCG, 3 IN 1 WEEKS, SUBCUTANEOUS
     Route: 058
     Dates: start: 20090101, end: 20091101
  3. PROPRANOLOL (PROPRANOLOL /00030001/) [Concomitant]
  4. UNSPECIFIED MEDICATION (ALL OTHER THERAPEUTIC PRODUCTS) [Concomitant]
  5. PROPYLTHIOURACIL [Concomitant]
  6. PAROXETINE HCL [Concomitant]
  7. BACLOFEN [Concomitant]
  8. DICLOFFNAC (DICLOFENAC /00372301/) [Concomitant]
  9. CARBAMAZEPINE [Concomitant]
  10. IBUPROFEN [Concomitant]
  11. VALTREX [Concomitant]

REACTIONS (7)
  - FALL [None]
  - FEELING OF BODY TEMPERATURE CHANGE [None]
  - GAIT DISTURBANCE [None]
  - INFLUENZA LIKE ILLNESS [None]
  - MULTIPLE SCLEROSIS RELAPSE [None]
  - PAIN [None]
  - WHITE BLOOD CELL COUNT DECREASED [None]
